FAERS Safety Report 14505780 (Version 1)
Quarter: 2018Q1

REPORT INFORMATION
  Report Type: Spontaneous
  Country: US (occurrence: US)
  Receive Date: 20180207
  Receipt Date: 20180207
  Transmission Date: 20180509
  Serious: Yes (Disabling)
  Sender: FDA-Public Use
  Company Number: None

PATIENT
  Age: 64 Year
  Sex: Male
  Weight: 99.9 kg

DRUGS (22)
  1. VITAMIN K [Concomitant]
     Active Substance: PHYTONADIONE
  2. FOLATE [Concomitant]
     Active Substance: FOLATE SODIUM
  3. EPA [Concomitant]
  4. ANTACIDS [Concomitant]
     Active Substance: UNSPECIFIED INGREDIENT
  5. TRIAMTERINE [Concomitant]
  6. TESTOSTERONE CYPRIANATE [Concomitant]
  7. MELATONIN [Concomitant]
     Active Substance: MELATONIN
  8. MAGNESIUM [Concomitant]
     Active Substance: MAGNESIUM
  9. DOXAZOSIN [Concomitant]
     Active Substance: DOXAZOSIN\DOXAZOSIN MESYLATE
  10. VITAMIN D [Concomitant]
     Active Substance: CHOLECALCIFEROL
  11. SAW PALMETTO [Concomitant]
     Active Substance: HERBALS\SAW PALMETTO
  12. ANASTROZOLE. [Concomitant]
     Active Substance: ANASTROZOLE
  13. OMEPROZOLE [Concomitant]
     Active Substance: OMEPRAZOLE
  14. BOTOX [Suspect]
     Active Substance: ONABOTULINUMTOXINA
     Indication: THERAPEUTIC PROCEDURE
     Dosage: QUANTITY:75 UNITS;OTHER FREQUENCY:EVERY 6 MONTHS;?
     Route: 030
     Dates: start: 20161026, end: 20171118
  15. VITAMIN C [Concomitant]
     Active Substance: ASCORBIC ACID
  16. VITAMIN B [Concomitant]
     Active Substance: VITAMIN B
  17. SELENIUM [Concomitant]
     Active Substance: SELENIUM
  18. MILK THISTLE [Concomitant]
     Active Substance: DIETARY SUPPLEMENT\HERBALS\MILK THISTLE
  19. AMLODIPINE [Concomitant]
     Active Substance: AMLODIPINE BESYLATE
  20. METFORMIN [Concomitant]
     Active Substance: METFORMIN HYDROCHLORIDE
  21. CURCUMIN [Concomitant]
     Active Substance: CURCUMIN
  22. ZINC. [Concomitant]
     Active Substance: ZINC

REACTIONS (3)
  - Muscular weakness [None]
  - Gait disturbance [None]
  - Musculoskeletal disorder [None]

NARRATIVE: CASE EVENT DATE: 20171119
